FAERS Safety Report 5984053-5 (Version None)
Quarter: 2008Q4

REPORT INFORMATION
  Report Type: 
  Country: None (occurrence: None)
  Receive Date: 20081208
  Receipt Date: 20080819
  Transmission Date: 20090506
  Serious: Yes (Other)
  Sender: FDA-Public Use
  Company Number: US-AMGEN-QUU300329

PATIENT
  Sex: Male

DRUGS (2)
  1. ENBREL [Suspect]
     Indication: PSORIASIS
     Route: 058
     Dates: start: 20031114, end: 20080728
  2. DOVONEX [Concomitant]
     Dates: start: 20070701

REACTIONS (4)
  - MULTIPLE SCLEROSIS [None]
  - OPTIC NEURITIS [None]
  - PSORIASIS [None]
  - PSORIATIC ARTHROPATHY [None]
